FAERS Safety Report 25444982 (Version 1)
Quarter: 2025Q2

REPORT INFORMATION
  Report Type: Spontaneous
  Country: US (occurrence: None)
  Receive Date: 20250616
  Receipt Date: 20250616
  Transmission Date: 20250716
  Serious: Yes (Other)
  Sender: FDA-CTU
  Company Number: None

PATIENT
  Age: 59 Year
  Sex: Female
  Weight: 83.25 kg

DRUGS (1)
  1. TRICHLOROACETIC ACID [Suspect]
     Active Substance: TRICHLOROACETIC ACID
     Indication: Blepharoplasty
     Dates: start: 20250422, end: 20250422

REACTIONS (3)
  - Vomiting [None]
  - Lacrimation increased [None]
  - Chemical burn [None]

NARRATIVE: CASE EVENT DATE: 20250422
